FAERS Safety Report 15485631 (Version 1)
Quarter: 2018Q4

REPORT INFORMATION
  Report Type: Spontaneous
  Country: NL (occurrence: NL)
  Receive Date: 20181010
  Receipt Date: 20181010
  Transmission Date: 20190205
  Serious: Yes (Hospitalization)
  Sender: FDA-Public Use
  Company Number: PHHY2018NL115256

PATIENT
  Age: 29 Year
  Sex: Female

DRUGS (1)
  1. QUETIAPINE. [Suspect]
     Active Substance: QUETIAPINE
     Indication: POST-TRAUMATIC STRESS DISORDER
     Dosage: 8 DF, UNK
     Route: 065

REACTIONS (8)
  - Sinus tachycardia [Unknown]
  - Restlessness [Recovering/Resolving]
  - Intentional overdose [Unknown]
  - Delirium [Recovered/Resolved]
  - Product use in unapproved indication [Unknown]
  - Toxicity to various agents [Unknown]
  - Depressed level of consciousness [Unknown]
  - Hallucination, visual [Unknown]
